FAERS Safety Report 4840237-0 (Version None)
Quarter: 2005Q4

REPORT INFORMATION
  Report Type: 
  Country: None (occurrence: None)
  Receive Date: 20051125
  Receipt Date: 20051111
  Transmission Date: 20060501
  Serious: Yes (Life-Threatening, Hospitalization)
  Sender: FDA-Public Use
  Company Number: HQWYE558515NOV05

PATIENT
  Age: 44 Year
  Sex: Male
  Weight: 66.5 kg

DRUGS (7)
  1. RAPAMUNE [Suspect]
     Indication: PROPHYLAXIS AGAINST TRANSPLANT REJECTION
     Dates: end: 20050525
  2. MYCOPHENOLIC ACID [Suspect]
     Indication: PROPHYLAXIS AGAINST TRANSPLANT REJECTION
     Dosage: 360 MG 3X PER 1 DAY
     Dates: start: 20050526, end: 20050607
  3. TACROLIMUS (TACROLIMUS) [Suspect]
     Indication: PROPHYLAXIS AGAINST TRANSPLANT REJECTION
     Dosage: 2 MG 2X PER 1 DAY
     Dates: end: 20050607
  4. LIPITOR [Concomitant]
  5. ZOLOFT [Concomitant]
  6. SYNTHROID (LEOVTHYROXINE SODIUM) [Concomitant]
  7. AIRBORNE (VITAMIN A/VITAMIN C/VITAMIN E) [Concomitant]

REACTIONS (9)
  - ABSCESS [None]
  - CELLULITIS [None]
  - CLOSTRIDIUM COLITIS [None]
  - FEBRILE NEUTROPENIA [None]
  - GALLBLADDER DISORDER [None]
  - HAEMORRHOIDS [None]
  - HYPOTENSION [None]
  - NECROTISING FASCIITIS [None]
  - WHITE BLOOD CELL COUNT DECREASED [None]
